FAERS Safety Report 12879094 (Version 1)
Quarter: 2016Q4

REPORT INFORMATION
  Report Type: Spontaneous
  Country: US (occurrence: US)
  Receive Date: 20161024
  Receipt Date: 20161024
  Transmission Date: 20170207
  Serious: Yes (Other)
  Sender: FDA-Public Use
  Company Number: US-AMGEN-USASP2016144132

PATIENT
  Age: 64 Year
  Sex: Male

DRUGS (3)
  1. ENBREL [Suspect]
     Active Substance: ETANERCEPT
     Indication: PSORIASIS
     Dosage: 50 MG, QWK
     Route: 065
     Dates: start: 2011
  2. SYNTHROID [Concomitant]
     Active Substance: LEVOTHYROXINE SODIUM
     Dosage: UNK UNK, QD
  3. VALSARTAN. [Concomitant]
     Active Substance: VALSARTAN
     Dosage: 320 MG, QD

REACTIONS (4)
  - Wrong technique in product usage process [Unknown]
  - Incorrect product storage [Unknown]
  - False positive tuberculosis test [Unknown]
  - Prostate cancer [Unknown]

NARRATIVE: CASE EVENT DATE: 20161008
